FAERS Safety Report 4877489-7 (Version None)
Quarter: 2006Q1

REPORT INFORMATION
  Report Type: 
  Country: None (occurrence: None)
  Receive Date: 20060109
  Receipt Date: 20051230
  Transmission Date: 20060701
  Serious: Yes (Hospitalization, Other)
  Sender: FDA-Public Use
  Company Number: 2005142452

PATIENT
  Age: 83 Year
  Sex: Male

DRUGS (7)
  1. NEURONTIN [Suspect]
     Indication: POLYNEUROPATHY
     Dosage: 600 MG (3000 MG, 2 IN 1 D); ORAL
     Route: 048
     Dates: start: 20050930, end: 20051020
  2. ANTIHYPERTENSIVES (ANTIHYPERTENSIVES) [Suspect]
     Indication: BLOOD PRESSURE
  3. SPIRONOLACTONE [Concomitant]
  4. DILTIAZEM HCL [Concomitant]
  5. RAMIPRIL [Concomitant]
  6. DICLOFENAC SODIUM [Concomitant]
  7. PARACETAMOL [Concomitant]

REACTIONS (10)
  - ASTHENIA [None]
  - CONFUSIONAL STATE [None]
  - DEMENTIA ALZHEIMER'S TYPE [None]
  - DRUG INEFFECTIVE [None]
  - DYSSTASIA [None]
  - FALL [None]
  - HYPOTENSION [None]
  - MALAISE [None]
  - PAIN IN EXTREMITY [None]
  - VASCULAR DEMENTIA [None]
